FAERS Safety Report 7141026-7 (Version None)
Quarter: 2010Q4

REPORT INFORMATION
  Report Type: 
  Country: None (occurrence: None)
  Receive Date: 20101122
  Receipt Date: 20101111
  Transmission Date: 20110411
  Serious: Yes (Hospitalization)
  Sender: FDA-Public Use
  Company Number: 021950

PATIENT
  Sex: Female
  Weight: 2.9 kg

DRUGS (5)
  1. KEPPRA [Suspect]
     Indication: EPILEPSY
     Dosage: (500 MG BID PLACENTAL), (2 G, AT THE END OF PREGNANCY TRANSPLACENTAL)
     Route: 064
     Dates: start: 20090101
  2. CONCERTA [Suspect]
     Indication: ATTENTION DEFICIT/HYPERACTIVITY DISORDER
     Dosage: SEE IMAGE
     Route: 064
     Dates: end: 20100601
  3. METHYLPHENIDATE HYDROCHLORIDE (RITALINE) [Suspect]
     Indication: ATTENTION DEFICIT/HYPERACTIVITY DISORDER
     Dosage: (10 MG, 10 MG AS NEEEED DURING WHOLE PREGNANCY TRANSPLACENTAL)
     Route: 064
     Dates: end: 20100601
  4. MORPHINE [Suspect]
     Indication: PAIN
     Dosage: (80 MG QD, 40-20-20 MG AND 40 MG IF NEEDED TILL DELIVERY TRANSPLACENTAL)
     Route: 064
  5. TRAMAL /00599201/ (TRAMAL) (NOT SPECIFIED) [Suspect]
     Indication: PAIN
     Dosage: (100 MG TID TRANSPLACENTAL)
     Route: 064

REACTIONS (2)
  - DRUG WITHDRAWAL SYNDROME NEONATAL [None]
  - MATERNAL DRUGS AFFECTING FOETUS [None]
